FAERS Safety Report 7806445-1 (Version None)
Quarter: 2011Q4

REPORT INFORMATION
  Report Type: 
  Country: None (occurrence: None)
  Receive Date: 20111011
  Receipt Date: 20110929
  Transmission Date: 20120403
  Serious: Yes (Hospitalization)
  Sender: FDA-Public Use
  Company Number: DE-PFIZER INC-2011233383

PATIENT
  Age: 62 Year
  Sex: Male

DRUGS (3)
  1. NOVALGIN [Concomitant]
     Dosage: UNK
     Dates: start: 20110203
  2. DURAGESIC-100 [Concomitant]
     Dosage: UNK
     Dates: start: 20110209
  3. TEMSIROLIMUS [Suspect]
     Indication: HEAD AND NECK CANCER
     Dosage: 25 MG, WEEKLY
     Route: 042
     Dates: start: 20110204, end: 20110312

REACTIONS (1)
  - SUPERINFECTION [None]
